FAERS Safety Report 11163626 (Version 1)
Quarter: 2015Q2

REPORT INFORMATION
  Report Type: Spontaneous
  Country: US (occurrence: US)
  Receive Date: 20150604
  Receipt Date: 20150604
  Transmission Date: 20150821
  Serious: Yes (Disabling, Other)
  Sender: FDA-Public Use
  Company Number: US-PFIZER INC-2015186395

PATIENT
  Age: 59 Year
  Sex: Female
  Weight: 53 kg

DRUGS (2)
  1. NORVASC [Suspect]
     Active Substance: AMLODIPINE BESYLATE
     Dosage: 5 MG, 1X/DAY
  2. NORVASC [Suspect]
     Active Substance: AMLODIPINE BESYLATE
     Indication: BLOOD PRESSURE
     Dosage: 5 MG, 2X/DAY

REACTIONS (2)
  - Muscle strain [Unknown]
  - Accident at work [Unknown]

NARRATIVE: CASE EVENT DATE: 2002
